FAERS Safety Report 8950338 (Version 1)
Quarter: 2012Q4

REPORT INFORMATION
  Report Type: Spontaneous
  Country: US (occurrence: None)
  Receive Date: 20121130
  Receipt Date: 20121130
  Transmission Date: 20130627
  Serious: No
  Sender: FDA-Public Use
  Company Number: None

PATIENT
  Age: 69 Year
  Sex: Female

DRUGS (12)
  1. XARELTO [Suspect]
     Indication: ATRIAL FIBRILLATION
     Dosage: 20 mg Daily po
     Route: 048
     Dates: start: 20120425
  2. HYDROCODONE AND ACETAMINOPHEN [Concomitant]
  3. LOSARTAN [Concomitant]
  4. METFORMIN [Concomitant]
  5. OXYGEN [Concomitant]
  6. PAXIL [Concomitant]
  7. PRAVASTATIN [Concomitant]
  8. PROBIOTIC [Concomitant]
  9. SPIRONOLACTONE [Concomitant]
  10. TIAZAC [Concomitant]
  11. TYLENOL [Concomitant]
  12. VITAMIN D3 [Concomitant]

REACTIONS (1)
  - Pruritus [None]
